FAERS Safety Report 26146962 (Version 2)
Quarter: 2025Q4

REPORT INFORMATION
  Report Type: Other
  Country: US (occurrence: US)
  Receive Date: 20251211
  Receipt Date: 20251216
  Transmission Date: 20260119
  Serious: Yes (Hospitalization, Other)
  Sender: BRECKENRIDGE PHARMACEUTICAL, INC.
  Company Number: US-Breckenridge Pharmaceutical, Inc.-2190373

PATIENT
  Age: 24 Month
  Sex: Male

DRUGS (1)
  1. METHADONE [Suspect]
     Active Substance: METHADONE HYDROCHLORIDE
     Route: 061

REACTIONS (4)
  - Toxicity to various agents [Recovering/Resolving]
  - Accidental exposure to product by child [Recovering/Resolving]
  - Brain herniation [Recovering/Resolving]
  - Brain oedema [Recovering/Resolving]
